FAERS Safety Report 15866629 (Version 4)
Quarter: 2023Q2

REPORT INFORMATION
  Report Type: Spontaneous
  Country: US (occurrence: US)
  Receive Date: 20190125
  Receipt Date: 20230510
  Transmission Date: 20230721
  Serious: No
  Sender: FDA-Public Use
  Company Number: US-PFIZER INC-2019034355

PATIENT
  Age: 60 Year
  Sex: Female

DRUGS (1)
  1. METHOTREXATE SODIUM [Suspect]
     Active Substance: METHOTREXATE SODIUM
     Dosage: UNK

REACTIONS (3)
  - Drug hypersensitivity [Unknown]
  - Nausea [Unknown]
  - Vomiting [Unknown]
